FAERS Safety Report 16390639 (Version 4)
Quarter: 2020Q1

REPORT INFORMATION
  Report Type: Report from Study
  Country: US (occurrence: US)
  Receive Date: 20190604
  Receipt Date: 20200207
  Transmission Date: 20200409
  Serious: Yes (Death, Hospitalization)
  Sender: FDA-Public Use
  Company Number: US-ACTELION-A-NJ2018-167622

PATIENT
  Age: 69 Year
  Sex: Female

DRUGS (24)
  1. CLARITIN [Concomitant]
     Active Substance: LORATADINE
     Dosage: 10 MG
     Dates: start: 20181218
  2. SPIRONOLACTONE. [Concomitant]
     Active Substance: SPIRONOLACTONE
     Dosage: 25 MG
     Dates: start: 20181218
  3. VITAMIN B12 [Concomitant]
     Active Substance: CYANOCOBALAMIN
     Dosage: 500 MCG
     Dates: start: 20181218
  4. ALLOPURINOL. [Concomitant]
     Active Substance: ALLOPURINOL
     Dosage: 300 MG
     Dates: start: 20181218
  5. OXYCODONE [Concomitant]
     Active Substance: OXYCODONE
     Dosage: 5 MG
  6. MULTIVITAMIN [Concomitant]
     Active Substance: VITAMINS
     Dosage: UNK, QD
     Dates: start: 20181218
  7. DIGOXIN. [Concomitant]
     Active Substance: DIGOXIN
     Dosage: 0.125 MG
     Dates: start: 20181218
  8. IMODIUM MULTI-SYMPTOM RELIEF [Concomitant]
     Active Substance: DIMETHICONE\LOPERAMIDE HYDROCHLORIDE
     Dosage: UNK
     Dates: start: 20181218
  9. VALACYCLOVIR [Concomitant]
     Active Substance: VALACYCLOVIR HYDROCHLORIDE
     Dosage: 500 MG
     Dates: start: 20181218
  10. VENLAFAXINE [Concomitant]
     Active Substance: VENLAFAXINE HYDROCHLORIDE
     Dosage: 75 MG
  11. CALCIUM [Concomitant]
     Active Substance: CALCIUM
     Dosage: 600 MG
     Dates: start: 20181218
  12. DICLOFENAC [Concomitant]
     Active Substance: DICLOFENAC
     Dosage: 1 % GEL
     Dates: start: 20181218
  13. NEXIUM [Concomitant]
     Active Substance: ESOMEPRAZOLE MAGNESIUM
     Dosage: 40 MG
     Dates: start: 20181218
  14. REMODULIN [Concomitant]
     Active Substance: TREPROSTINIL
     Dosage: 1 MG/ML
     Dates: start: 20181218
  15. TORSEMIDE. [Concomitant]
     Active Substance: TORSEMIDE
     Dosage: 20 MG
     Dates: start: 20181218
  16. TRIAMCINOLONE [Concomitant]
     Active Substance: TRIAMCINOLONE
     Dosage: .1 %
     Dates: start: 20181218
  17. ZOLPIDEM [Concomitant]
     Active Substance: ZOLPIDEM TARTRATE
     Dosage: 5 MG
     Dates: start: 20181218
  18. OPSUMIT [Suspect]
     Active Substance: MACITENTAN
     Indication: PULMONARY ARTERIAL HYPERTENSION
     Dosage: 10 MG, QD
     Route: 048
     Dates: start: 20170601, end: 201907
  19. NIACIN. [Concomitant]
     Active Substance: NIACIN
  20. METRONIDAZOLE. [Concomitant]
     Active Substance: METRONIDAZOLE
     Dosage: 0.75 %
     Route: 067
     Dates: start: 20181218
  21. OPSUMIT [Suspect]
     Active Substance: MACITENTAN
     Dosage: 10 MG, QD
     Route: 048
     Dates: start: 20171213
  22. ONDANSETRON [Concomitant]
     Active Substance: ONDANSETRON
     Dosage: 4 MG
     Dates: start: 20181218
  23. VITAMIN D3 [Concomitant]
     Active Substance: CHOLECALCIFEROL
     Dosage: 400 IU
     Dates: start: 20181218
  24. SILDENAFIL. [Concomitant]
     Active Substance: SILDENAFIL

REACTIONS (24)
  - Dyspnoea [Recovered/Resolved]
  - Bronchitis [Not Recovered/Not Resolved]
  - End stage renal disease [Fatal]
  - Diverticulitis [Not Recovered/Not Resolved]
  - Pulmonary hypertension [Unknown]
  - Right ventricular failure [Fatal]
  - Abdominal discomfort [Unknown]
  - Haematocrit increased [Recovered/Resolved]
  - Cardiac failure [Unknown]
  - Abdominal pain [Unknown]
  - Colitis [Unknown]
  - Flushing [Unknown]
  - Haemoglobin increased [Recovered/Resolved]
  - Fluid overload [Recovered/Resolved]
  - Oedema [Fatal]
  - Iron deficiency [Recovered/Resolved]
  - Concomitant disease aggravated [Fatal]
  - Coronary arterial stent insertion [Unknown]
  - Renal impairment [Fatal]
  - Oxygen saturation decreased [Not Recovered/Not Resolved]
  - Product dose omission [Not Recovered/Not Resolved]
  - Coronary artery stenosis [Unknown]
  - Hypoxia [Recovered/Resolved]
  - Polycythaemia [Recovered/Resolved]

NARRATIVE: CASE EVENT DATE: 20170918
